FAERS Safety Report 8443962-8 (Version None)
Quarter: 2012Q2

REPORT INFORMATION
  Report Type: 
  Country: None (occurrence: None)
  Receive Date: 20120618
  Receipt Date: 20120608
  Transmission Date: 20120825
  Serious: Yes (Death, Hospitalization)
  Sender: FDA-Public Use
  Company Number: PHHY2012BR050007

PATIENT
  Sex: Female

DRUGS (4)
  1. TEGRETOL [Suspect]
     Dosage: 200 MG, A DAY FOR 4 YEARS
     Route: 048
     Dates: start: 20080101
  2. TOFRANIL [Suspect]
     Indication: DIZZINESS
     Dosage: 1 DF, TID
     Route: 048
  3. TEGRETOL [Suspect]
     Indication: ISCHAEMIA
     Dosage: 1 DF, QD
     Route: 048
  4. TOFRANIL [Suspect]
     Dosage: 75 MG, A DAY FOR 10 YEARS
     Route: 048

REACTIONS (2)
  - URINARY TRACT INFECTION [None]
  - CONDITION AGGRAVATED [None]
